FAERS Safety Report 6703124-9 (Version None)
Quarter: 2010Q2

REPORT INFORMATION
  Report Type: 
  Country: None (occurrence: None)
  Receive Date: 20100430
  Receipt Date: 20100422
  Transmission Date: 20101027
  Serious: Yes (Hospitalization, Other)
  Sender: FDA-Public Use
  Company Number: US-BIOGENIDEC-2009BI042052

PATIENT
  Age: 33 Year
  Sex: Female

DRUGS (2)
  1. AVONEX [Suspect]
     Indication: MULTIPLE SCLEROSIS
     Route: 030
     Dates: start: 20030805, end: 20100226
  2. DRUG NOS [Concomitant]

REACTIONS (2)
  - HEPATIC FAILURE [None]
  - UTERINE LEIOMYOMA [None]
